FAERS Safety Report 16081862 (Version 1)
Quarter: 2019Q1

REPORT INFORMATION
  Report Type: Spontaneous
  Country: CA (occurrence: CA)
  Receive Date: 20190317
  Receipt Date: 20190317
  Transmission Date: 20190418
  Serious: Yes (Other)
  Sender: FDA-Public Use
  Company Number: CA-009507513-1903CAN006510

PATIENT
  Age: 65 Year
  Sex: Female

DRUGS (3)
  1. TEMODAL [Suspect]
     Active Substance: TEMOZOLOMIDE
     Indication: PRODUCT USED FOR UNKNOWN INDICATION
     Dosage: 320 MILLIGRAM, QD
     Route: 048
  2. TEMODAL [Suspect]
     Active Substance: TEMOZOLOMIDE
     Indication: PANCREATIC NEOPLASM
     Dosage: 320 MILLIGRAM, QD
     Route: 048
  3. XELODA [Suspect]
     Active Substance: CAPECITABINE
     Indication: PRODUCT USED FOR UNKNOWN INDICATION
     Route: 065

REACTIONS (7)
  - Blood test abnormal [Recovering/Resolving]
  - Cytopenia [Recovering/Resolving]
  - Renal pain [Recovering/Resolving]
  - Nasopharyngitis [Recovering/Resolving]
  - Fluid intake reduced [Recovering/Resolving]
  - Platelet count decreased [Recovering/Resolving]
  - Off label use [Recovering/Resolving]
